FAERS Safety Report 17125647 (Version 3)
Quarter: 2020Q1

REPORT INFORMATION
  Report Type: Spontaneous
  Country: CZ (occurrence: CZ)
  Receive Date: 20191208
  Receipt Date: 20200124
  Transmission Date: 20200409
  Serious: Yes (Life-Threatening, Hospitalization, Other)
  Sender: FDA-Public Use
  Company Number: NVSC2019CZ061941

PATIENT
  Age: 28 Year
  Sex: Female

DRUGS (1)
  1. GILENYA [Suspect]
     Active Substance: FINGOLIMOD HYDROCHLORIDE
     Indication: PRODUCT USED FOR UNKNOWN INDICATION
     Dosage: 0.5 MG, QD (1-0-0)
     Route: 065
     Dates: start: 201501, end: 201909

REACTIONS (14)
  - Blood triglycerides increased [Recovering/Resolving]
  - Amnesia [Recovering/Resolving]
  - Blood cholesterol increased [Recovering/Resolving]
  - Optic neuritis [Recovering/Resolving]
  - Paresis [Recovering/Resolving]
  - Incontinence [Recovering/Resolving]
  - Prosopagnosia [Unknown]
  - Rebound effect [Recovering/Resolving]
  - Cognitive disorder [Recovering/Resolving]
  - Blindness [Recovering/Resolving]
  - Confusional state [Recovering/Resolving]
  - Gait disturbance [Recovering/Resolving]
  - Hemiparesis [Recovering/Resolving]
  - General physical health deterioration [Unknown]

NARRATIVE: CASE EVENT DATE: 20191020
